FAERS Safety Report 8848155 (Version 2)
Quarter: 2012Q4

REPORT INFORMATION
  Report Type: 
  Country: US (occurrence: US)
  Receive Date: 20121018
  Receipt Date: 20121109
  Transmission Date: 20130627
  Serious: Yes (Other)
  Sender: FDA-Public Use
  Company Number: US-PFIZER INC-2012255950

PATIENT

DRUGS (2)
  1. CADUET [Suspect]
     Dosage: UNK
  2. VIAGRA [Suspect]
     Dosage: UNK

REACTIONS (3)
  - Parkinson^s disease [Unknown]
  - Dementia [Unknown]
  - Memory impairment [Unknown]
